FAERS Safety Report 13024312 (Version 2)
Quarter: 2017Q1

REPORT INFORMATION
  Report Type: Spontaneous
  Country: BR (occurrence: BR)
  Receive Date: 20161213
  Receipt Date: 20170113
  Transmission Date: 20170428
  Serious: Yes (Hospitalization)
  Sender: FDA-Public Use
  Company Number: PHHY2016BR169768

PATIENT
  Sex: Female
  Weight: 49 kg

DRUGS (6)
  1. ONBRIZE CORT [Suspect]
     Active Substance: BUDESONIDE\INDACATEROL MALEATE
     Dosage: 300 UG, QD ((30 CAPSULES) )
     Route: 055
     Dates: start: 2014
  2. FORASEQ [Suspect]
     Active Substance: BUDESONIDE\FORMOTEROL FUMARATE
     Indication: EMPHYSEMA
     Dosage: 2 DF, QD
     Route: 055
     Dates: start: 2009, end: 2013
  3. SPIRIVA [Suspect]
     Active Substance: TIOTROPIUM BROMIDE MONOHYDRATE
     Indication: EMPHYSEMA
     Route: 065
  4. SEEBRI BREEZHALER [Suspect]
     Active Substance: GLYCOPYRROLATE
     Indication: EMPHYSEMA
     Dosage: 1 DF, QD
     Route: 055
  5. SEEBRI BREEZHALER [Suspect]
     Active Substance: GLYCOPYRROLATE
     Dosage: UNK
     Route: 055
  6. ONBRIZE CORT [Suspect]
     Active Substance: BUDESONIDE\INDACATEROL MALEATE
     Indication: EMPHYSEMA
     Dosage: 150 UG, QD
     Route: 055
     Dates: start: 2013, end: 2014

REACTIONS (7)
  - Malaise [Recovered/Resolved]
  - Arthralgia [Unknown]
  - Migraine [Recovered/Resolved]
  - Dyspnoea [Recovered/Resolved]
  - Pain [Recovered/Resolved]
  - Headache [Recovered/Resolved]
  - Drug intolerance [Recovered/Resolved]
